FAERS Safety Report 21043448 (Version 1)
Quarter: 2022Q3

REPORT INFORMATION
  Report Type: Report from Study
  Country: CN (occurrence: CN)
  Receive Date: 20220705
  Receipt Date: 20220705
  Transmission Date: 20221027
  Serious: Yes (Hospitalization)
  Sender: FDA-Public Use
  Company Number: CN-NOVARTISPH-NVSC2019CN105919

PATIENT
  Age: 66 Year
  Sex: Male

DRUGS (5)
  1. DOCETAXEL [Suspect]
     Active Substance: DOCETAXEL
     Indication: Oesophageal squamous cell carcinoma
     Dosage: 120 MG, Q3W
     Route: 042
     Dates: start: 20180930
  2. LANSOPRAZOLE [Concomitant]
     Active Substance: LANSOPRAZOLE
     Indication: Product used for unknown indication
     Dosage: UNK
     Route: 065
     Dates: start: 20180929, end: 20181008
  3. TROPISETRON HYDROCHLORIDE [Concomitant]
     Active Substance: TROPISETRON HYDROCHLORIDE
     Indication: Product used for unknown indication
     Dosage: UNK
     Route: 065
     Dates: start: 20180929, end: 20181005
  4. PROMETHAZINE HYDROCHLORIDE [Concomitant]
     Active Substance: PROMETHAZINE HYDROCHLORIDE
     Indication: Product used for unknown indication
     Dosage: UNK
     Route: 065
     Dates: start: 20180929, end: 20180930
  5. DEXAMETHASONE SODIUM PHOSPHATE [Concomitant]
     Active Substance: DEXAMETHASONE SODIUM PHOSPHATE
     Indication: Product used for unknown indication
     Dosage: UNK
     Route: 065
     Dates: start: 20180929, end: 20181005

REACTIONS (1)
  - Leukopenia [Recovered/Resolved]

NARRATIVE: CASE EVENT DATE: 20181008
